FAERS Safety Report 21035039 (Version 1)
Quarter: 2022Q3

REPORT INFORMATION
  Report Type: Report from Study
  Country: KR (occurrence: KR)
  Receive Date: 20220701
  Receipt Date: 20220701
  Transmission Date: 20221027
  Serious: Yes (Hospitalization)
  Sender: FDA-Public Use
  Company Number: KR-TAKEDA-2022TUS034106

PATIENT
  Age: 73 Year
  Sex: Female
  Weight: 58 kg

DRUGS (10)
  1. IXAZOMIB [Suspect]
     Active Substance: IXAZOMIB
     Indication: Plasma cell myeloma refractory
     Dosage: 4 MILLIGRAM
     Route: 065
     Dates: start: 20191007, end: 20191029
  2. IXAZOMIB [Suspect]
     Active Substance: IXAZOMIB
     Dosage: 3 MILLIGRAM
     Route: 065
     Dates: start: 20191115, end: 20191207
  3. IXAZOMIB [Suspect]
     Active Substance: IXAZOMIB
     Dosage: 2.3 MILLIGRAM
     Route: 065
     Dates: start: 20191213
  4. DEXAMETHASONE [Suspect]
     Active Substance: DEXAMETHASONE
     Indication: Plasma cell myeloma refractory
     Dosage: 15 MILLIGRAM
     Route: 065
     Dates: start: 20191007, end: 20200529
  5. DEXAMETHASONE [Suspect]
     Active Substance: DEXAMETHASONE
     Dosage: 15 MILLIGRAM
     Route: 065
     Dates: start: 20200604, end: 20200928
  6. REVLIMID [Suspect]
     Active Substance: LENALIDOMIDE
     Indication: Plasma cell myeloma refractory
     Dosage: 10 MILLIGRAM
     Route: 065
     Dates: start: 20191007, end: 20201020
  7. REVLIMID [Suspect]
     Active Substance: LENALIDOMIDE
     Dosage: 5 MILLIGRAM
     Route: 065
     Dates: start: 20201026
  8. ASPIRIN [Concomitant]
     Active Substance: ASPIRIN
     Indication: Thrombosis prophylaxis
     Dosage: 100 MILLIGRAM, QD
     Route: 065
     Dates: start: 20200630
  9. GABAPENTIN [Concomitant]
     Active Substance: GABAPENTIN
     Indication: Neuropathy peripheral
     Dosage: 100 MILLIGRAM, BID
     Dates: start: 20161111
  10. ZOLEDRONIC ACID [Concomitant]
     Active Substance: ZOLEDRONIC ACID
     Indication: Bone lesion
     Dosage: 4 MILLIGRAM, QD
     Dates: start: 20211013

REACTIONS (1)
  - Dizziness postural [Recovered/Resolved]

NARRATIVE: CASE EVENT DATE: 20220420
